FAERS Safety Report 4343627-8 (Version None)
Quarter: 2004Q2

REPORT INFORMATION
  Report Type: 
  Country: None (occurrence: None)
  Receive Date: 20040419
  Receipt Date: 20040405
  Transmission Date: 20050107
  Serious: Yes (Other)
  Sender: FDA-Public Use
  Company Number: 2004023207

PATIENT
  Age: 46 Year
  Sex: Male
  Weight: 88.4514 kg

DRUGS (6)
  1. VIAGRA [Suspect]
     Indication: ERECTILE DYSFUNCTION
     Dosage: 100 MG
     Dates: start: 20020101
  2. ANTIHYPERTENSIVES (ANTIHYPERTENSIVES) [Concomitant]
  3. MIRTAZAPINE [Concomitant]
  4. TOPIRAMATE [Concomitant]
  5. LOMOTIL [Concomitant]
  6. VITAMINS (VITAMINS) [Concomitant]

REACTIONS (3)
  - ACCIDENT AT WORK [None]
  - LOCAL SWELLING [None]
  - ROTATOR CUFF SYNDROME [None]
